FAERS Safety Report 7282222-8 (Version None)
Quarter: 2011Q1

REPORT INFORMATION
  Report Type: 
  Country: None (occurrence: None)
  Receive Date: 20110209
  Receipt Date: 20110131
  Transmission Date: 20110831
  Serious: Yes (Other)
  Sender: FDA-Public Use
  Company Number: US-BIOGENIDEC-2010BI042239

PATIENT
  Age: 55 Year
  Sex: Female
  Weight: 57 kg

DRUGS (4)
  1. AVONEX [Suspect]
     Route: 030
     Dates: start: 20000101
  2. AVONEX [Suspect]
     Indication: MULTIPLE SCLEROSIS
     Route: 030
  3. BACLOFEN [Concomitant]
     Indication: MUSCLE SPASTICITY
  4. GABAPENTIN [Concomitant]
     Indication: PAIN

REACTIONS (7)
  - CARDIAC FAILURE CONGESTIVE [None]
  - TREMOR [None]
  - CORONARY ARTERY OCCLUSION [None]
  - PAIN [None]
  - HYPERTENSION [None]
  - LOSS OF CONTROL OF LEGS [None]
  - ASTHENIA [None]
